FAERS Safety Report 6965741-0 (Version None)
Quarter: 2010Q3

REPORT INFORMATION
  Report Type: 
  Country: None (occurrence: None)
  Receive Date: 20100903
  Receipt Date: 20100831
  Transmission Date: 20110219
  Serious: Yes (Death)
  Sender: FDA-Public Use
  Company Number: GB-MERCK-1005GBR00025

PATIENT
  Age: 44 Year
  Sex: Female
  Weight: 70 kg

DRUGS (25)
  1. EMEND [Suspect]
     Indication: NAUSEA
     Route: 048
     Dates: start: 20100311, end: 20100313
  2. CHLORPHENIRAMINE MALEATE [Concomitant]
     Route: 048
  3. DEXAMETHASONE [Concomitant]
     Indication: CHEMOTHERAPY
     Route: 042
     Dates: start: 20100304, end: 20100304
  4. DEXAMETHASONE [Concomitant]
     Route: 042
     Dates: start: 20100311, end: 20100311
  5. DEXAMETHASONE [Concomitant]
     Route: 042
     Dates: start: 20100226, end: 20100226
  6. POTASSIUM BICARBONATE AND SODIUM ALGINATE [Concomitant]
     Indication: GASTROOESOPHAGEAL REFLUX DISEASE
     Route: 048
     Dates: start: 20100401, end: 20100402
  7. LANSOPRAZOLE [Concomitant]
     Indication: GASTROOESOPHAGEAL REFLUX DISEASE
     Route: 048
     Dates: start: 20100226, end: 20100314
  8. LANSOPRAZOLE [Concomitant]
     Route: 048
     Dates: start: 20100329, end: 20100402
  9. LANSOPRAZOLE [Concomitant]
     Indication: DYSPEPSIA
     Route: 048
     Dates: start: 20100226, end: 20100314
  10. LANSOPRAZOLE [Concomitant]
     Route: 048
     Dates: start: 20100329, end: 20100402
  11. LEVOMEPROMAZINE [Concomitant]
     Indication: NAUSEA
     Route: 048
     Dates: start: 20100311, end: 20100311
  12. LEVOMEPROMAZINE [Concomitant]
     Route: 048
     Dates: start: 20100402, end: 20100402
  13. LIDOCAINE [Concomitant]
     Route: 058
     Dates: start: 20100331, end: 20100331
  14. MAGNESIUM SULFATE [Concomitant]
     Route: 042
     Dates: start: 20100226, end: 20100226
  15. MAGNESIUM SULFATE [Concomitant]
     Route: 042
     Dates: start: 20100304, end: 20100304
  16. METOCLOPRAMIDE [Concomitant]
     Indication: NAUSEA
     Route: 048
     Dates: start: 20100304, end: 20100419
  17. POLYETHYLENE GLYCOL 3350 AND POTASSIUM CHLORIDE AND SODIUM BICARBONATE [Concomitant]
     Indication: CONSTIPATION
     Route: 048
     Dates: start: 20100226
  18. ONDANSETRON [Concomitant]
     Indication: NAUSEA
     Route: 042
     Dates: start: 20100226
  19. ONDANSETRON [Concomitant]
     Route: 042
     Dates: start: 20100304
  20. ONDANSETRON [Concomitant]
     Route: 042
     Dates: start: 20100311
  21. MORPHINE SULFATE [Concomitant]
     Indication: PAIN
     Route: 048
     Dates: start: 20100311, end: 20100312
  22. ACETAMINOPHEN [Concomitant]
     Indication: PAIN
     Route: 048
  23. ESTROGENS, CONJUGATED [Concomitant]
     Indication: HORMONE REPLACEMENT THERAPY
     Route: 065
     Dates: start: 20100311, end: 20100314
  24. ESTROGENS, CONJUGATED [Concomitant]
     Route: 048
     Dates: start: 20100329, end: 20100401
  25. DOCUSATE SODIUM [Concomitant]
     Indication: CONSTIPATION
     Route: 048
     Dates: start: 20100226

REACTIONS (3)
  - ERYTHEMA MULTIFORME [None]
  - GENERALISED ERYTHEMA [None]
  - TOXIC EPIDERMAL NECROLYSIS [None]
